FAERS Safety Report 8832069 (Version 1)
Quarter: 2012Q4

REPORT INFORMATION
  Report Type: Report from Study
  Country: US (occurrence: US)
  Receive Date: 20121009
  Receipt Date: 20121009
  Transmission Date: 20130627
  Serious: Yes (Hospitalization, Other)
  Sender: FDA-Public Use
  Company Number: US-ABBOTT-12P-163-0990463-00

PATIENT
  Sex: Female
  Weight: 85.81 kg

DRUGS (1)
  1. HUMIRA PRE-FILLED SYRINGE [Suspect]
     Indication: RHEUMATOID ARTHRITIS
     Dates: start: 2008, end: 2010

REACTIONS (5)
  - Limb crushing injury [Recovering/Resolving]
  - Fall [Recovered/Resolved]
  - Movement disorder [Recovered/Resolved]
  - Pain [Unknown]
  - Activities of daily living impaired [Not Recovered/Not Resolved]
